FAERS Safety Report 7639256-0 (Version None)
Quarter: 2011Q3

REPORT INFORMATION
  Report Type: 
  Country: None (occurrence: None)
  Receive Date: 20110727
  Receipt Date: 20110721
  Transmission Date: 20111222
  Serious: Yes (Other)
  Sender: FDA-Public Use
  Company Number: US-MERCK-1107USA02680

PATIENT
  Age: 65 Year
  Sex: Female
  Weight: 52 kg

DRUGS (6)
  1. IVEMEND [Suspect]
     Indication: PROPHYLAXIS OF NAUSEA AND VOMITING
     Route: 042
     Dates: start: 20110120
  2. CYTOXAN [Concomitant]
     Route: 065
  3. TAXOTERE [Concomitant]
     Route: 065
  4. PEPCID [Concomitant]
     Route: 065
  5. BENADRYL [Concomitant]
     Route: 065
  6. ALOXI [Concomitant]
     Route: 065

REACTIONS (3)
  - THROMBOPHLEBITIS SUPERFICIAL [None]
  - PAIN IN EXTREMITY [None]
  - TREATMENT NONCOMPLIANCE [None]
